APPROVED DRUG PRODUCT: DERMATOP E EMOLLIENT
Active Ingredient: PREDNICARBATE
Strength: 0.1% **Federal Register determination that product was not discontinued or withdrawn for safety or effectiveness reasons**
Dosage Form/Route: CREAM;TOPICAL
Application: N020279 | Product #001
Applicant: VALEANT INTERNATIONAL BERMUDA
Approved: Oct 29, 1993 | RLD: Yes | RS: No | Type: DISCN